FAERS Safety Report 26035433 (Version 1)
Quarter: 2025Q4

REPORT INFORMATION
  Report Type: Spontaneous
  Country: EU (occurrence: EU)
  Receive Date: 20251112
  Receipt Date: 20251112
  Transmission Date: 20260118
  Serious: Yes (Life-Threatening, Hospitalization)
  Sender: MYLAN
  Company Number: EU-MYLANLABS-2025M1095513

PATIENT
  Age: 31 Year
  Sex: Female

DRUGS (3)
  1. TRANEXAMIC ACID [Suspect]
     Active Substance: TRANEXAMIC ACID
     Indication: Shock haemorrhagic
     Dosage: 2 GRAM
  2. ERGONOVINE MALEATE [Suspect]
     Active Substance: ERGONOVINE MALEATE
     Indication: Shock haemorrhagic
     Dosage: UNK
  3. CARBOPROST [Suspect]
     Active Substance: CARBOPROST
     Indication: Shock haemorrhagic
     Dosage: UNK

REACTIONS (1)
  - Drug ineffective [Unknown]
